FAERS Safety Report 8791042 (Version 1)
Quarter: 2012Q4

REPORT INFORMATION
  Report Type: 
  Country: DE (occurrence: None)
  Receive Date: 20120910
  Receipt Date: 20120910
  Transmission Date: 20130627
  Serious: Yes (Death, Congenital Anomaly)
  Sender: FDA-Public Use
  Company Number: AUR-APL-2012-03786

PATIENT
  Sex: Male
  Weight: .14 kg

DRUGS (2)
  1. SUMATRIPTAN [Suspect]
     Indication: MIGRAINE
     Route: 064
  2. FOLIO FORTE [Concomitant]

REACTIONS (4)
  - Abortion induced [None]
  - Renal aplasia [None]
  - Oligohydramnios [None]
  - Maternal drugs affecting foetus [None]
